FAERS Safety Report 18210383 (Version 1)
Quarter: 2020Q3

REPORT INFORMATION
  Report Type: Spontaneous
  Country: CA (occurrence: CA)
  Receive Date: 20200829
  Receipt Date: 20200829
  Transmission Date: 20201103
  Serious: Yes (Other)
  Sender: FDA-Public Use
  Company Number: CA-ACCORD-197836

PATIENT
  Sex: Female
  Weight: 70 kg

DRUGS (8)
  1. PREDNISONE. [Concomitant]
     Active Substance: PREDNISONE
     Indication: PRODUCT USED FOR UNKNOWN INDICATION
  2. HUMIRA [Suspect]
     Active Substance: ADALIMUMAB
     Indication: RHEUMATOID ARTHRITIS
     Dosage: DOSAGE FORM: SOLUTION SUBCUTANEOUS
     Route: 058
  3. METHOTREXATE. [Suspect]
     Active Substance: METHOTREXATE
     Indication: RHEUMATOID ARTHRITIS
  4. ENBREL [Suspect]
     Active Substance: ETANERCEPT
     Indication: RHEUMATOID ARTHRITIS
     Dosage: FREQUENCY: 1 EVERY 1 WEEKS
  5. RITUXIMAB. [Suspect]
     Active Substance: RITUXIMAB
     Indication: RHEUMATOID ARTHRITIS
  6. SIMPONI [Suspect]
     Active Substance: GOLIMUMAB
     Indication: RHEUMATOID ARTHRITIS
     Dosage: DOSAGE FORM: SOLUTION SUBCUTANEOUS
     Route: 058
  7. ORENCIA [Suspect]
     Active Substance: ABATACEPT
     Indication: RHEUMATOID ARTHRITIS
  8. ARAVA [Concomitant]
     Active Substance: LEFLUNOMIDE
     Indication: PRODUCT USED FOR UNKNOWN INDICATION

REACTIONS (11)
  - Muscular weakness [Unknown]
  - Drug ineffective [Unknown]
  - Gait disturbance [Unknown]
  - Diabetes mellitus [Unknown]
  - Grip strength decreased [Unknown]
  - Mobility decreased [Unknown]
  - Peripheral swelling [Unknown]
  - Adjustment disorder with depressed mood [Unknown]
  - Contraindicated product administered [Unknown]
  - Pain in extremity [Unknown]
  - Weight decreased [Unknown]
